FAERS Safety Report 5846423-5 (Version None)
Quarter: 2008Q3

REPORT INFORMATION
  Report Type: 
  Country: None (occurrence: None)
  Receive Date: 20080815
  Receipt Date: 20080805
  Transmission Date: 20090109
  Serious: Yes (Other)
  Sender: FDA-Public Use
  Company Number: US-BAYER-200715014NA

PATIENT
  Sex: Male

DRUGS (1)
  1. TRASYLOL [Suspect]
     Indication: CARDIOMYOPATHY
     Dates: start: 20050516

REACTIONS (8)
  - ANAPHYLACTIC SHOCK [None]
  - CARDIAC FAILURE [None]
  - COMA [None]
  - DISABILITY [None]
  - INJURY [None]
  - MYOCARDIAL INFARCTION [None]
  - RENAL FAILURE [None]
  - RESPIRATORY FAILURE [None]
